FAERS Safety Report 25274416 (Version 3)
Quarter: 2025Q2

REPORT INFORMATION
  Report Type: Spontaneous
  Country: GB (occurrence: GB)
  Receive Date: 20250506
  Receipt Date: 20250613
  Transmission Date: 20250716
  Serious: Yes (Hospitalization)
  Sender: MYLAN
  Company Number: GB-MYLANLABS-2025M1037582

PATIENT
  Age: 33 Year
  Sex: Male
  Weight: 114 kg

DRUGS (8)
  1. CLOZARIL [Suspect]
     Active Substance: CLOZAPINE
     Indication: Schizophrenia
     Dosage: UNK, BID (125 MG OM, 150 MG ON)
     Dates: start: 20250411, end: 20250425
  2. CLOZARIL [Suspect]
     Active Substance: CLOZAPINE
     Indication: Schizoaffective disorder
     Dosage: UNK, BID (125 MG OM, 150 MG ON)
     Route: 048
     Dates: start: 20250411, end: 20250425
  3. CLOZARIL [Suspect]
     Active Substance: CLOZAPINE
     Dosage: UNK, BID (125 MG OM, 150 MG ON)
     Route: 048
     Dates: start: 20250411, end: 20250425
  4. CLOZARIL [Suspect]
     Active Substance: CLOZAPINE
     Dosage: UNK, BID (125 MG OM, 150 MG ON)
     Dates: start: 20250411, end: 20250425
  5. VALPROIC ACID [Concomitant]
     Active Substance: VALPROIC ACID
  6. VALPROIC ACID [Concomitant]
     Active Substance: VALPROIC ACID
     Route: 065
  7. VALPROIC ACID [Concomitant]
     Active Substance: VALPROIC ACID
     Route: 065
  8. VALPROIC ACID [Concomitant]
     Active Substance: VALPROIC ACID

REACTIONS (16)
  - Pneumonia [Not Recovered/Not Resolved]
  - N-terminal prohormone brain natriuretic peptide increased [Recovering/Resolving]
  - Myocarditis [Not Recovered/Not Resolved]
  - Pyrexia [Unknown]
  - Chills [Unknown]
  - Malaise [Unknown]
  - Asthenia [Unknown]
  - Cough [Recovering/Resolving]
  - Fatigue [Unknown]
  - C-reactive protein increased [Unknown]
  - Troponin T increased [Unknown]
  - Oxygen saturation decreased [Unknown]
  - Blood fibrinogen increased [Unknown]
  - Prothrombin time prolonged [Unknown]
  - Activated partial thromboplastin time prolonged [Unknown]
  - Fibrin D dimer increased [Unknown]

NARRATIVE: CASE EVENT DATE: 20250101
